FAERS Safety Report 6686988-7 (Version None)
Quarter: 2010Q2

REPORT INFORMATION
  Report Type: 
  Country: None (occurrence: None)
  Receive Date: 20100419
  Receipt Date: 20100407
  Transmission Date: 20101027
  Serious: Yes (Other)
  Sender: FDA-Public Use
  Company Number: JP-PFIZER INC-2010040243

PATIENT
  Age: 77 Year
  Sex: Female

DRUGS (10)
  1. GABAPEN [Suspect]
     Dosage: 1800 MG, 3X/DAY
     Route: 048
     Dates: start: 20090209, end: 20100407
  2. GABAPEN [Suspect]
     Dosage: 2400 MG, 3X/DAY
     Dates: start: 20090220
  3. VASOLAN [Concomitant]
     Route: 048
  4. LIPITOR [Concomitant]
     Dosage: UNK
     Route: 048
  5. WARFARIN [Concomitant]
  6. SELOKEEN [Concomitant]
     Dosage: UNK
     Route: 048
  7. DIGOXIN [Concomitant]
     Dosage: UNK
     Route: 048
  8. MAGNESIUM OXIDE [Concomitant]
     Dosage: UNK
     Route: 048
  9. FUROSEMIDE [Concomitant]
     Dosage: UNK
     Route: 048
  10. THYRADIN S [Concomitant]
     Dosage: UNK
     Route: 048

REACTIONS (2)
  - BLOOD POTASSIUM INCREASED [None]
  - DIPLOPIA [None]
